FAERS Safety Report 15067929 (Version 1)
Quarter: 2018Q3

REPORT INFORMATION
  Report Type: Spontaneous
  Country: NL (occurrence: NL)
  Receive Date: 20180626
  Receipt Date: 20180626
  Transmission Date: 20181010
  Serious: Yes (Other)
  Sender: FDA-Public Use
  Company Number: NL-TEVA-2018-NL-865399

PATIENT
  Age: 19 Month
  Sex: Male
  Weight: 13 kg

DRUGS (1)
  1. QVAR [Suspect]
     Active Substance: BECLOMETHASONE DIPROPIONATE
     Indication: ASTHMA
     Dosage: 2X PUFF PER DAY
     Route: 065
     Dates: start: 20161001, end: 20171129

REACTIONS (3)
  - Anxiety [Recovered/Resolved]
  - Growth retardation [Unknown]
  - Diplopia [Unknown]

NARRATIVE: CASE EVENT DATE: 20161010
